FAERS Safety Report 5041456-3 (Version None)
Quarter: 2006Q2

REPORT INFORMATION
  Report Type: 
  Country: None (occurrence: None)
  Receive Date: 20060627
  Receipt Date: 20060616
  Transmission Date: 20061013
  Serious: Yes (Life-Threatening)
  Sender: FDA-Public Use
  Company Number: 0206018

PATIENT
  Age: 59 Year
  Sex: Female
  Weight: 107.9561 kg

DRUGS (1)
  1. DEPODUR [Suspect]
     Indication: POSTOPERATIVE ANALGESIA
     Dosage: (12.5 MG, ONCE), EPIDURAL
     Route: 008
     Dates: start: 20060516, end: 20060516

REACTIONS (4)
  - APNOEA [None]
  - OPERATIVE HAEMORRHAGE [None]
  - RESPIRATORY RATE DECREASED [None]
  - SEDATION [None]
